FAERS Safety Report 14019243 (Version 1)
Quarter: 2017Q3

REPORT INFORMATION
  Report Type: Spontaneous
  Country: US (occurrence: US)
  Receive Date: 20170928
  Receipt Date: 20170928
  Transmission Date: 20171128
  Serious: No
  Sender: FDA-Public Use
  Company Number: US-BION-005091

PATIENT
  Sex: Female

DRUGS (5)
  1. MONTELAN [Concomitant]
  2. PANITUMUMAB [Concomitant]
     Active Substance: PANITUMUMAB
  3. CAPTOPRIL. [Concomitant]
     Active Substance: CAPTOPRIL
  4. INHALER [Concomitant]
     Active Substance: UNSPECIFIED INGREDIENT
     Dates: start: 20161029, end: 20161110
  5. LOPERAMIDE HYDROCHLORIDE. [Suspect]
     Active Substance: LOPERAMIDE HYDROCHLORIDE
     Indication: DIARRHOEA
     Dosage: 3-4 DF DAILY
     Route: 048

REACTIONS (1)
  - Drug ineffective [Unknown]
